FAERS Safety Report 8890168 (Version 2)
Quarter: 2012Q4

REPORT INFORMATION
  Report Type: 
  Country: IT (occurrence: IT)
  Receive Date: 20121107
  Receipt Date: 20121130
  Transmission Date: 20130627
  Serious: Yes (Hospitalization)
  Sender: FDA-Public Use
  Company Number: PHHY2012IT096558

PATIENT
  Age: 17 Year
  Sex: Female

DRUGS (2)
  1. TEGRETOL [Suspect]
     Indication: EPILEPSY
     Dosage: 700 mg, UNK
     Route: 048
     Dates: start: 20121015
  2. URSODEOXYCHOLIC ACID [Concomitant]

REACTIONS (3)
  - Amylase increased [Recovering/Resolving]
  - Abdominal pain upper [Recovering/Resolving]
  - Transaminases increased [Recovering/Resolving]
